FAERS Safety Report 6248546-8 (Version None)
Quarter: 2009Q2

REPORT INFORMATION
  Report Type: 
  Country: None (occurrence: None)
  Receive Date: 20090624
  Receipt Date: 20090624
  Transmission Date: 20091009
  Serious: No
  Sender: FDA-Public Use
  Company Number: None

PATIENT
  Age: 47 Year
  Sex: Male
  Weight: 99 kg

DRUGS (10)
  1. HEPARIN [Suspect]
     Indication: PROPHYLAXIS
     Dosage: 1350 UNITS/HR IVCI
     Route: 042
     Dates: start: 20090401, end: 20090402
  2. HEPARIN [Suspect]
     Indication: PROPHYLAXIS
     Dosage: 1350 UNITS/HR IVCI
     Route: 042
     Dates: start: 20090407
  3. SENNOSIDES [Concomitant]
  4. DOCUSATE [Concomitant]
  5. FENTANYL [Concomitant]
  6. CEFEPIME [Concomitant]
  7. METRONIDAZOLE [Concomitant]
  8. LANSOPRAZOLE [Concomitant]
  9. OXYCODONE [Concomitant]
  10. INSULIN [Concomitant]

REACTIONS (3)
  - HEPARIN-INDUCED THROMBOCYTOPENIA [None]
  - POST PROCEDURAL HAEMORRHAGE [None]
  - POSTOPERATIVE THROMBOSIS [None]
